FAERS Safety Report 11027309 (Version 1)
Quarter: 2015Q2

REPORT INFORMATION
  Report Type: Spontaneous
  Country: FI (occurrence: FI)
  Receive Date: 20150414
  Receipt Date: 20150414
  Transmission Date: 20150821
  Serious: Yes (Other)
  Sender: FDA-Public Use
  Company Number: FI-WATSON-2015-07605

PATIENT
  Sex: Female

DRUGS (1)
  1. STELLA (ZOLPIDEM TARTRATE) [Suspect]
     Active Substance: ZOLPIDEM TARTRATE
     Indication: INSOMNIA
     Dosage: 10 MG, UNK
     Route: 048
     Dates: start: 20130408, end: 20130411

REACTIONS (6)
  - Hallucinations, mixed [Unknown]
  - Off label use [Unknown]
  - Hallucination, auditory [Unknown]
  - Hallucination, visual [Unknown]
  - Confusional state [Unknown]
  - Drug ineffective [Unknown]
